FAERS Safety Report 8424005-9 (Version None)
Quarter: 2012Q2

REPORT INFORMATION
  Report Type: 
  Country: None (occurrence: None)
  Receive Date: 20120608
  Receipt Date: 20120531
  Transmission Date: 20120825
  Serious: Yes (Other)
  Sender: FDA-Public Use
  Company Number: PHHY2012CN047357

PATIENT
  Age: 45 Year
  Sex: Male

DRUGS (3)
  1. MYCOPHENOLATE MOFETIL [Concomitant]
     Indication: HEART TRANSPLANT
     Dosage: UNK UKN, UNK
  2. CYCLOSPORINE [Suspect]
     Indication: HEART TRANSPLANT
     Dosage: UNK UKN, UNK
  3. STEROIDS NOS [Concomitant]
     Dosage: UNK UKN, UNK

REACTIONS (7)
  - FATIGUE [None]
  - HYPERCHOLESTEROLAEMIA [None]
  - HYPERTENSION [None]
  - EJECTION FRACTION DECREASED [None]
  - EXERCISE TOLERANCE DECREASED [None]
  - OBESITY [None]
  - CORONARY ARTERY STENOSIS [None]
